FAERS Safety Report 16877198 (Version 1)
Quarter: 2019Q4

REPORT INFORMATION
  Report Type: Spontaneous
  Country: US (occurrence: US)
  Receive Date: 20191002
  Receipt Date: 20191002
  Transmission Date: 20200122
  Serious: Yes (Death, Other)
  Sender: FDA-Public Use
  Company Number: US-SHILPA MEDICARE LIMITED-SML-US-2019-00206

PATIENT
  Age: 33 Year
  Sex: Female

DRUGS (1)
  1. AZACITIDINE, UNKNOWN [Suspect]
     Active Substance: AZACITIDINE
     Indication: ACUTE MYELOID LEUKAEMIA
     Route: 065

REACTIONS (9)
  - Aortic aneurysm [Unknown]
  - Product use in unapproved indication [Unknown]
  - Hypoxia [Fatal]
  - Septic shock [Fatal]
  - Implant site extravasation [Unknown]
  - Therapeutic response decreased [Unknown]
  - Pneumonia bacterial [Unknown]
  - Acute respiratory failure [Fatal]
  - Cytopenia [Unknown]
